FAERS Safety Report 6744532-X (Version None)
Quarter: 2010Q2

REPORT INFORMATION
  Report Type: 
  Country: None (occurrence: None)
  Receive Date: 20100527
  Receipt Date: 20100426
  Transmission Date: 20101027
  Serious: No
  Sender: FDA-Public Use
  Company Number: US-BAYER-201022322NA

PATIENT
  Age: 77 Year
  Sex: Male

DRUGS (2)
  1. ULTRAVIST 300 [Suspect]
     Indication: COMPUTERISED TOMOGRAM ABDOMEN
     Dosage: TOTAL DAILY DOSE: 75 ML
     Route: 042
     Dates: start: 20100426, end: 20100426
  2. BARIUM [Concomitant]
     Route: 048
     Dates: start: 20100426, end: 20100426

REACTIONS (1)
  - URTICARIA [None]
